FAERS Safety Report 7424618-7 (Version None)
Quarter: 2011Q2

REPORT INFORMATION
  Report Type: 
  Country: None (occurrence: None)
  Receive Date: 20110419
  Receipt Date: 20110406
  Transmission Date: 20111010
  Serious: Yes (Other)
  Sender: FDA-Public Use
  Company Number: FR-BAUSCH-2011BL001111

PATIENT
  Age: 60 Year
  Sex: Female

DRUGS (3)
  1. TIMOLOL [Concomitant]
     Route: 047
  2. CARTEOL LP 2% COLLYRE EN SOL RECIPIENT UNIDOSE [Suspect]
     Indication: OCULAR HYPERTENSION
     Route: 047
     Dates: start: 20110201, end: 20110222
  3. XALATAN /SWE/ [Suspect]
     Route: 047
     Dates: start: 20110201

REACTIONS (6)
  - CHEST PAIN [None]
  - WEIGHT DECREASED [None]
  - VOMITING [None]
  - MYALGIA [None]
  - SENSATION OF HEAVINESS [None]
  - RASH [None]
